FAERS Safety Report 12978948 (Version 2)
Quarter: 2016Q4

REPORT INFORMATION
  Report Type: Report from Study
  Country: US (occurrence: US)
  Receive Date: 20161128
  Receipt Date: 20161213
  Transmission Date: 20170207
  Serious: Yes (Hospitalization, Other)
  Sender: FDA-Public Use
  Company Number: US-AMGEN-USASL2016166409

PATIENT
  Age: 74 Year
  Sex: Female

DRUGS (1)
  1. REPATHA [Suspect]
     Active Substance: EVOLOCUMAB
     Indication: PRODUCT USED FOR UNKNOWN INDICATION
     Dosage: 140 MG, Q2WK
     Route: 065

REACTIONS (11)
  - Headache [Unknown]
  - Injection site swelling [Unknown]
  - Transient ischaemic attack [Unknown]
  - Injection site extravasation [Unknown]
  - Weight increased [Unknown]
  - Underdose [Unknown]
  - Blood pressure fluctuation [Unknown]
  - Peripheral artery occlusion [Unknown]
  - Hypertension [Unknown]
  - Injection site pain [Unknown]
  - Injection site mass [Unknown]
